FAERS Safety Report 12622037 (Version 1)
Quarter: 2016Q3

REPORT INFORMATION
  Report Type: Spontaneous
  Country: BR (occurrence: BR)
  Receive Date: 20160804
  Receipt Date: 20160804
  Transmission Date: 20161109
  Serious: Yes (Other)
  Sender: FDA-Public Use
  Company Number: BR-PFIZER INC-2016373967

PATIENT
  Sex: Male

DRUGS (1)
  1. GEODON [Suspect]
     Active Substance: ZIPRASIDONE HYDROCHLORIDE\ZIPRASIDONE MESYLATE
     Dosage: 3 TABLETS PER DAY: 1 IN THE MORNING AND 2 AT NIGHT (STRENGTH 40 MG)

REACTIONS (2)
  - Respiratory disorder [Unknown]
  - Bipolar disorder [Unknown]
